FAERS Safety Report 9859829 (Version 1)
Quarter: 2014Q1

REPORT INFORMATION
  Report Type: Spontaneous
  Country: US (occurrence: US)
  Receive Date: 20140131
  Receipt Date: 20140131
  Transmission Date: 20141002
  Serious: Yes (Other)
  Sender: FDA-Public Use
  Company Number: US-ABBVIE-14P-163-1193871-00

PATIENT
  Age: 75 Year
  Sex: Male

DRUGS (2)
  1. HUMIRA [Suspect]
     Indication: PSORIASIS
     Dates: start: 20120817
  2. HUMIRA [Suspect]
     Dates: end: 20131227

REACTIONS (2)
  - Skin lesion [Not Recovered/Not Resolved]
  - Mycosis fungoides [Not Recovered/Not Resolved]
